FAERS Safety Report 5933204-7 (Version None)
Quarter: 2008Q4

REPORT INFORMATION
  Report Type: 
  Country: None (occurrence: None)
  Receive Date: 20081028
  Receipt Date: 20081016
  Transmission Date: 20090506
  Serious: Yes (Other)
  Sender: FDA-Public Use
  Company Number: US-PFIZER INC-2008087613

PATIENT
  Sex: Female
  Weight: 28.6 kg

DRUGS (1)
  1. ZOLOFT [Suspect]
     Indication: OBSESSIVE-COMPULSIVE DISORDER
     Dates: start: 20080709

REACTIONS (3)
  - ANTISOCIAL BEHAVIOUR [None]
  - HOSTILITY [None]
  - OBSESSIVE-COMPULSIVE DISORDER [None]
